FAERS Safety Report 7443604-4 (Version None)
Quarter: 2011Q2

REPORT INFORMATION
  Report Type: 
  Country: None (occurrence: None)
  Receive Date: 20110428
  Receipt Date: 20110425
  Transmission Date: 20111010
  Serious: Yes (Hospitalization)
  Sender: FDA-Public Use
  Company Number: US-ABBOTT-11P-163-0721876-00

PATIENT
  Age: 45 Year
  Sex: Female

DRUGS (2)
  1. SYNTHROID [Suspect]
     Dates: start: 20110314, end: 20110324
  2. SYNTHROID [Suspect]
     Indication: PRODUCT USED FOR UNKNOWN INDICATION
     Dates: start: 20110303, end: 20110314

REACTIONS (5)
  - VOMITING [None]
  - CHEST PAIN [None]
  - PALPITATIONS [None]
  - NAUSEA [None]
  - WEIGHT INCREASED [None]
